FAERS Safety Report 18615900 (Version 16)
Quarter: 2021Q3

REPORT INFORMATION
  Report Type: Report from Study
  Country: BR (occurrence: BR)
  Receive Date: 20201214
  Receipt Date: 20210921
  Transmission Date: 20211014
  Serious: Yes (Life-Threatening, Hospitalization, Other)
  Sender: FDA-Public Use
  Company Number: NVSC2020BR331682

PATIENT
  Age: 69 Year
  Sex: Female
  Weight: 74 kg

DRUGS (23)
  1. ZOMETA [Suspect]
     Active Substance: ZOLEDRONIC ACID
     Indication: BONE DISORDER
     Dosage: UNK (FORMULATION: INJECTION)
     Route: 065
     Dates: start: 2016
  2. FULVESTRANT. [Suspect]
     Active Substance: FULVESTRANT
     Indication: PRODUCT USED FOR UNKNOWN INDICATION
     Dosage: UNK
     Route: 065
  3. XELODA [Concomitant]
     Active Substance: CAPECITABINE
     Indication: PRODUCT USED FOR UNKNOWN INDICATION
     Dosage: 7 DF
     Route: 065
  4. FASLODEX [Concomitant]
     Active Substance: FULVESTRANT
     Dosage: UNK, QMO
     Route: 030
     Dates: start: 20200930
  5. ZOMETA [Suspect]
     Active Substance: ZOLEDRONIC ACID
     Dosage: UNK UNK, Q3MO
     Route: 065
  6. FASLODEX [Concomitant]
     Active Substance: FULVESTRANT
     Dosage: UNK
     Route: 065
     Dates: start: 20200901
  7. XELODA [Concomitant]
     Active Substance: CAPECITABINE
     Dosage: 5 DF
     Route: 065
  8. ALPRAZOLAM. [Concomitant]
     Active Substance: ALPRAZOLAM
     Dosage: UNK, PRN
     Route: 065
     Dates: start: 202008
  9. VONAU [Concomitant]
     Active Substance: ONDANSETRON HYDROCHLORIDE
     Indication: PRODUCT USED FOR UNKNOWN INDICATION
     Dosage: UNK
     Route: 065
  10. ADDERA D3 [Concomitant]
     Active Substance: CHOLECALCIFEROL
     Indication: OSTEOPENIA
     Dosage: UNK, QD
     Route: 048
     Dates: start: 20201221
  11. FASLODEX [Concomitant]
     Active Substance: FULVESTRANT
     Dosage: 500 MG, QMO
     Route: 030
     Dates: start: 20200902
  12. XELODA [Concomitant]
     Active Substance: CAPECITABINE
     Dosage: UNK
     Route: 065
     Dates: start: 201901
  13. XELODA [Concomitant]
     Active Substance: CAPECITABINE
     Dosage: 2 DF
     Route: 065
  14. FASLODEX [Concomitant]
     Active Substance: FULVESTRANT
     Indication: BREAST CANCER
     Dosage: 3 DF, Q2W
     Route: 065
     Dates: start: 20180103, end: 20190118
  15. ARIMIDEX [Concomitant]
     Active Substance: ANASTROZOLE
     Indication: PRODUCT USED FOR UNKNOWN INDICATION
     Dosage: UNK
     Route: 065
     Dates: start: 20160101
  16. FLANAX CAPS [Concomitant]
     Active Substance: NAPROXEN
     Indication: PRODUCT USED FOR UNKNOWN INDICATION
     Dosage: UNK
     Route: 065
  17. CICAPLAST [Concomitant]
     Indication: PRODUCT USED FOR UNKNOWN INDICATION
     Dosage: UNK
     Route: 065
  18. ZOMETA [Suspect]
     Active Substance: ZOLEDRONIC ACID
     Indication: METASTASES TO BONE
     Dosage: UNK, Q3MO
     Route: 065
     Dates: start: 20160726
  19. ZOMETA [Suspect]
     Active Substance: ZOLEDRONIC ACID
     Dosage: 4 MG
     Route: 042
     Dates: start: 201712
  20. XELODA [Concomitant]
     Active Substance: CAPECITABINE
     Dosage: 3 DF
     Route: 065
  21. ALPRAZOLAM. [Concomitant]
     Active Substance: ALPRAZOLAM
     Indication: ANXIETY
     Dosage: UNK (AT NIGHT)
     Route: 048
     Dates: start: 2015
  22. LOSARTAN. [Concomitant]
     Active Substance: LOSARTAN
     Indication: HYPERTENSION
     Dosage: UNK, BID
     Route: 048
     Dates: start: 202006
  23. AMLODIPINE [Concomitant]
     Active Substance: AMLODIPINE BESYLATE
     Indication: HYPERTENSION
     Dosage: UNK, QD
     Route: 048
     Dates: start: 202006

REACTIONS (80)
  - Metastases to liver [Recovering/Resolving]
  - Nausea [Recovered/Resolved]
  - Muscular weakness [Unknown]
  - Vitamin D decreased [Not Recovered/Not Resolved]
  - Anxiety [Unknown]
  - Abdominal pain upper [Not Recovered/Not Resolved]
  - Visual impairment [Not Recovered/Not Resolved]
  - Bone pain [Recovering/Resolving]
  - Aspartate aminotransferase increased [Recovered/Resolved]
  - Metastases to pelvis [Unknown]
  - Metastasis [Not Recovered/Not Resolved]
  - Dark circles under eyes [Recovering/Resolving]
  - Rash papular [Recovered/Resolved]
  - Haematoma [Recovering/Resolving]
  - Dizziness [Unknown]
  - Skeletal injury [Unknown]
  - Coma [Unknown]
  - Metastases to spine [Unknown]
  - Cataract [Not Recovered/Not Resolved]
  - Wound [Unknown]
  - Nausea [Recovered/Resolved]
  - Eyelid disorder [Recovered/Resolved]
  - Blood test abnormal [Recovering/Resolving]
  - Cardiac disorder [Unknown]
  - Malaise [Unknown]
  - Anaemia [Not Recovered/Not Resolved]
  - Administration site pain [Not Recovered/Not Resolved]
  - Erythema [Recovered/Resolved]
  - Red blood cell count decreased [Unknown]
  - Pruritus [Recovering/Resolving]
  - Bone erosion [Unknown]
  - Alanine aminotransferase increased [Recovered/Resolved]
  - Breast cancer [Not Recovered/Not Resolved]
  - Carbohydrate antigen 15-3 increased [Recovering/Resolving]
  - Alopecia [Recovering/Resolving]
  - Blood disorder [Unknown]
  - Tumour marker decreased [Not Recovered/Not Resolved]
  - Back pain [Unknown]
  - Ill-defined disorder [Unknown]
  - Vulvovaginal burning sensation [Unknown]
  - Somnolence [Not Recovered/Not Resolved]
  - Blood urea increased [Recovered/Resolved]
  - Somnolence [Recovered/Resolved]
  - Chest pain [Recovering/Resolving]
  - Volvulus [Unknown]
  - Neutropenia [Recovering/Resolving]
  - Bone lesion [Unknown]
  - Haemorrhage [Unknown]
  - Nail disorder [Unknown]
  - Drug hypersensitivity [Recovered/Resolved]
  - Skin discolouration [Unknown]
  - Pallor [Unknown]
  - Illness [Unknown]
  - Asthenia [Unknown]
  - Abdominal pain [Unknown]
  - Pain [Unknown]
  - Somnolence [Recovered/Resolved]
  - Immunodeficiency [Recovered/Resolved]
  - Weight decreased [Unknown]
  - Hypoaesthesia [Recovered/Resolved]
  - Eye swelling [Not Recovered/Not Resolved]
  - Skin disorder [Unknown]
  - Blood creatinine abnormal [Recovering/Resolving]
  - Musculoskeletal chest pain [Recovering/Resolving]
  - Hypotension [Unknown]
  - Labyrinthitis [Recovering/Resolving]
  - Road traffic accident [Recovering/Resolving]
  - Somnolence [Recovered/Resolved]
  - Product dose omission issue [Unknown]
  - Immunodeficiency [Not Recovered/Not Resolved]
  - Red blood cell count decreased [Recovered/Resolved]
  - White blood cell count decreased [Recovered/Resolved]
  - Fatigue [Recovering/Resolving]
  - White blood cell count decreased [Not Recovered/Not Resolved]
  - Blood creatinine increased [Recovered/Resolved]
  - Liver injury [Unknown]
  - Dry skin [Recovering/Resolving]
  - Oral discomfort [Unknown]
  - Platelet count decreased [Recovered/Resolved]
  - Skin discolouration [Recovered/Resolved]

NARRATIVE: CASE EVENT DATE: 2016
